FAERS Safety Report 8125192-2 (Version None)
Quarter: 2012Q1

REPORT INFORMATION
  Report Type: 
  Country: None (occurrence: None)
  Receive Date: 20120206
  Receipt Date: 20120116
  Transmission Date: 20120608
  Serious: Yes (Other)
  Sender: FDA-Public Use
  Company Number: JPI-P-017530

PATIENT
  Age: 78 Year
  Sex: Male

DRUGS (1)
  1. XYREM [Suspect]
     Indication: CATAPLEXY
     Dosage: (2.25 GM, UNKNOWN), ORAL
     Route: 048
     Dates: start: 20100219, end: 20100219

REACTIONS (2)
  - SLEEP APNOEA SYNDROME [None]
  - CHEYNE-STOKES RESPIRATION [None]
